FAERS Safety Report 5010072-1 (Version None)
Quarter: 2006Q2

REPORT INFORMATION
  Report Type: 
  Country: None (occurrence: None)
  Receive Date: 20060524
  Receipt Date: 20060515
  Transmission Date: 20061013
  Serious: Yes (Hospitalization)
  Sender: FDA-Public Use
  Company Number: JP-SANOFI-SYNTHELABO-A01200603693

PATIENT
  Sex: Male

DRUGS (3)
  1. LIVALO [Concomitant]
     Indication: DRUG USE FOR UNKNOWN INDICATION
     Route: 065
     Dates: start: 20060510
  2. PLAVIX [Suspect]
     Indication: ISCHAEMIC STROKE
     Route: 048
     Dates: start: 20060510, end: 20060515
  3. ADALAT [Concomitant]
     Indication: DRUG USE FOR UNKNOWN INDICATION
     Route: 048
     Dates: start: 20060510, end: 20060501

REACTIONS (4)
  - BLOOD PRESSURE SYSTOLIC INCREASED [None]
  - FALL [None]
  - FEELING HOT [None]
  - FOAMING AT MOUTH [None]
